FAERS Safety Report 21824009 (Version 2)
Quarter: 2023Q1

REPORT INFORMATION
  Report Type: Spontaneous
  Country: AR (occurrence: AR)
  Receive Date: 20230105
  Receipt Date: 20230127
  Transmission Date: 20230418
  Serious: Yes (Other)
  Sender: FDA-Public Use
  Company Number: AR-PFIZER INC-PV202300001934

PATIENT
  Age: 62 Year
  Sex: Male

DRUGS (1)
  1. SUTENT [Suspect]
     Active Substance: SUNITINIB MALATE
     Indication: Metastatic renal cell carcinoma
     Dosage: 50 MG, CYCLIC  DAILY 2/1 REST SCHEME)
     Dates: start: 20190401

REACTIONS (3)
  - Pleural effusion [Not Recovered/Not Resolved]
  - Lung operation [Unknown]
  - Off label use [Unknown]

NARRATIVE: CASE EVENT DATE: 20190401
